FAERS Safety Report 10718161 (Version 1)
Quarter: 2015Q1

REPORT INFORMATION
  Report Type: Spontaneous
  Country: US (occurrence: US)
  Receive Date: 20150118
  Receipt Date: 20150118
  Transmission Date: 20150721
  Serious: Yes (Hospitalization)
  Sender: FDA-Public Use
  Company Number: US-ASTRAZENECA-2015SE03843

PATIENT
  Sex: Female

DRUGS (3)
  1. PULMICORT RESPULES [Suspect]
     Active Substance: BUDESONIDE
     Route: 055
  2. ALBUTEROL NEBULIZER [Concomitant]
     Active Substance: ALBUTEROL
     Dosage: TWICE A DAY
  3. PULMICORT RESPULES [Suspect]
     Active Substance: BUDESONIDE
     Dosage: TWICE A DAY
     Route: 055

REACTIONS (3)
  - Pneumonia [Unknown]
  - Malaise [Unknown]
  - Product use issue [Unknown]
